FAERS Safety Report 9238373 (Version 1)
Quarter: 2013Q2

REPORT INFORMATION
  Report Type: Spontaneous
  Country: FR (occurrence: FR)
  Receive Date: 20130418
  Receipt Date: 20130418
  Transmission Date: 20140414
  Serious: Yes (Hospitalization)
  Sender: FDA-Public Use
  Company Number: FR-JNJFOC-20130405520

PATIENT
  Age: 87 Year
  Sex: Female
  Weight: 45 kg

DRUGS (5)
  1. EPITOMAX [Suspect]
     Indication: DYSKINESIA
     Route: 048
     Dates: start: 2010, end: 20130326
  2. EPITOMAX [Suspect]
     Indication: TREMOR
     Route: 048
     Dates: start: 2010, end: 20130326
  3. LITHIUM [Concomitant]
     Indication: BIPOLAR I DISORDER
     Route: 048
  4. PROPRANOLOL [Concomitant]
     Indication: TREMOR
     Route: 048
  5. EFFEXOR [Concomitant]
     Indication: BIPOLAR I DISORDER
     Route: 048

REACTIONS (7)
  - Frontotemporal dementia [Recovering/Resolving]
  - Myoclonus [Recovering/Resolving]
  - Confusional state [Recovering/Resolving]
  - Aphasia [Recovering/Resolving]
  - Apraxia [Recovering/Resolving]
  - Opsoclonus myoclonus [Unknown]
  - Off label use [Unknown]
